FAERS Safety Report 8265247-5 (Version None)
Quarter: 2012Q2

REPORT INFORMATION
  Report Type: 
  Country: None (occurrence: None)
  Receive Date: 20120406
  Receipt Date: 20120327
  Transmission Date: 20120825
  Serious: Yes (Hospitalization, Other)
  Sender: FDA-Public Use
  Company Number: US-ELI_LILLY_AND_COMPANY-US201007006400

PATIENT
  Sex: Female

DRUGS (18)
  1. ZOCOR [Concomitant]
     Indication: BLOOD CHOLESTEROL INCREASED
     Dosage: 40 MG, DAILY (1/D)
  2. FORTEO [Suspect]
     Indication: OSTEOPOROSIS
     Dosage: 20 UG, DAILY (1/D)
     Dates: start: 20100623, end: 20100716
  3. IRON [Concomitant]
     Dosage: 200 MG, MONTHLY (1/M)
  4. ASCORBIC ACID [Concomitant]
     Dosage: 500 MG, DAILY (1/D)
  5. ULTRAM [Concomitant]
     Dosage: UNK, 2/D
  6. TYLENOL (CAPLET) [Concomitant]
  7. COUMADIN [Concomitant]
     Dosage: 0.5 MG, QOD
  8. PRILOSEC [Concomitant]
     Dosage: 20 MG, 2/D
  9. PROAMATINE [Concomitant]
     Dosage: 10 MG, 2/D
  10. VITAMIN D [Concomitant]
     Dosage: 50000 U, MONTHLY (1/M)
  11. CLARITIN [Concomitant]
     Dosage: 10 MG, DAILY (1/D)
  12. FORTEO [Suspect]
     Dosage: 20 UG, DAILY (1/D)
     Dates: start: 20100907
  13. ARANESP [Concomitant]
     Dosage: 25 UG, WEEKLY (1/W)
  14. KAYEXALATE [Concomitant]
     Dosage: UNK, AS NEEDED
  15. CALCIUM CARBONATE [Concomitant]
     Indication: CALCIUM DEFICIENCY
  16. CARAFATE [Concomitant]
     Dosage: 1 G, AS NEEDED
  17. TUSSIONEX [Concomitant]
  18. DIALVIT [Concomitant]
     Dosage: UNK, DAILY (1/D)

REACTIONS (12)
  - HYPOTENSION [None]
  - BONE PAIN [None]
  - ARTHROPOD BITE [None]
  - PELVIC FRACTURE [None]
  - MUSCULOSKELETAL PAIN [None]
  - BONE DENSITY DECREASED [None]
  - ARTHRALGIA [None]
  - BLOOD PARATHYROID HORMONE INCREASED [None]
  - GASTROINTESTINAL VIRAL INFECTION [None]
  - BLOOD ALKALINE PHOSPHATASE INCREASED [None]
  - PYREXIA [None]
  - LIPASE INCREASED [None]
